FAERS Safety Report 26045104 (Version 2)
Quarter: 2025Q4

REPORT INFORMATION
  Report Type: Spontaneous
  Country: US (occurrence: US)
  Receive Date: 20251114
  Receipt Date: 20251128
  Transmission Date: 20260117
  Serious: Yes (Hospitalization, Other)
  Sender: ALKEM
  Company Number: None

PATIENT
  Age: 71 Year
  Sex: Female

DRUGS (1)
  1. TACROLIMUS [Suspect]
     Active Substance: TACROLIMUS
     Indication: Immunosuppressant drug therapy
     Dosage: UNK
     Route: 065
     Dates: start: 2016

REACTIONS (5)
  - Haematochezia [Recovered/Resolved]
  - Microangiopathic haemolytic anaemia [Unknown]
  - Pancytopenia [Unknown]
  - Thrombotic microangiopathy [Unknown]
  - Escherichia infection [Unknown]
